FAERS Safety Report 6923000-6 (Version None)
Quarter: 2010Q3

REPORT INFORMATION
  Report Type: 
  Country: None (occurrence: None)
  Receive Date: 20100813
  Receipt Date: 20100802
  Transmission Date: 20110219
  Serious: Yes (Life-Threatening, Hospitalization)
  Sender: FDA-Public Use
  Company Number: GB-WATSON-2010-10788

PATIENT
  Age: 20 Year
  Sex: Female
  Weight: 65 kg

DRUGS (13)
  1. METOCLOPRAMIDE HYDROCHLORIDE [Suspect]
     Indication: PROPHYLAXIS
     Dosage: 10 MG, UNKNOWN
     Route: 042
  2. FENTANYL CITRATE [Suspect]
     Indication: ANALGESIC THERAPY
     Dosage: 50 MCG, UNKNOWN
     Route: 008
  3. FENTANYL CITRATE [Suspect]
     Dosage: 2 MCG, UNKNOWN
     Route: 008
  4. ISOFLURANE [Suspect]
     Indication: PRODUCT USED FOR UNKNOWN INDICATION
     Dosage: UNK
     Route: 065
  5. LIDOCAINE HCL [Suspect]
     Indication: EPIDURAL ANAESTHESIA
     Dosage: 10 ML, UNKNOWN
     Route: 065
  6. RANITIDINE HYDROCHLORIDE (WATSON LABORATORIES) [Suspect]
     Indication: PROPHYLAXIS
     Dosage: 150 MG, UNKNOWN
     Route: 042
  7. BUPIVACAINE HCL [Suspect]
     Indication: EPIDURAL ANAESTHESIA
     Dosage: 10 ML, UNKNOWN
     Route: 065
  8. BUPIVACAINE HCL [Suspect]
     Dosage: 3 ML, UNKNOWN
     Route: 065
  9. BUPIVACAINE HCL [Suspect]
     Dosage: 8 ML, UNKNOWN
     Route: 065
  10. OXYTOCIN [Suspect]
     Indication: PRODUCT USED FOR UNKNOWN INDICATION
     Dosage: UNK
     Route: 065
  11. SODIUM CITRATE [Suspect]
     Indication: PROPHYLAXIS
     Dosage: 30 ML, UNKNOWN
     Route: 048
  12. SUXAMETHONIUM [Suspect]
     Indication: ANAESTHESIA
     Dosage: 100 MG, UNKNOWN
     Route: 065
  13. THIOPENTAL SODIUM [Suspect]
     Indication: ANAESTHESIA
     Dosage: 375 MG, UNKNOWN
     Route: 065

REACTIONS (3)
  - CARDIAC ARREST [None]
  - DRUG EXPOSURE DURING PREGNANCY [None]
  - INCORRECT ROUTE OF DRUG ADMINISTRATION [None]
